FAERS Safety Report 16421048 (Version 2)
Quarter: 2019Q3

REPORT INFORMATION
  Report Type: Spontaneous
  Country: HR (occurrence: HR)
  Receive Date: 20190612
  Receipt Date: 20190725
  Transmission Date: 20191004
  Serious: Yes (Hospitalization, Other)
  Sender: FDA-Public Use
  Company Number: HR-AMGEN-HRVSP2019089731

PATIENT

DRUGS (15)
  1. PREDNISOLONE. [Suspect]
     Active Substance: PREDNISOLONE
     Indication: LYMPHOPROLIFERATIVE DISORDER
     Dosage: UNK
     Route: 065
  2. PROCARBAZINE [Suspect]
     Active Substance: PROCARBAZINE
     Indication: LYMPHOPROLIFERATIVE DISORDER
     Dosage: UNK
     Route: 065
  3. BLEOMYCIN [Suspect]
     Active Substance: BLEOMYCIN SULFATE
     Indication: LYMPHOPROLIFERATIVE DISORDER
     Dosage: UNK
     Route: 065
  4. DEXAMETHASONE. [Suspect]
     Active Substance: DEXAMETHASONE
     Indication: LYMPHOPROLIFERATIVE DISORDER
     Dosage: UNK
     Route: 065
  5. ONCOVIN [Suspect]
     Active Substance: VINCRISTINE SULFATE
     Indication: LYMPHOPROLIFERATIVE DISORDER
     Dosage: UNK
     Route: 065
  6. HYDROXYDAUNORUBICIN [Suspect]
     Active Substance: DOXORUBICIN
     Indication: LYMPHOPROLIFERATIVE DISORDER
     Dosage: UNK
     Route: 065
  7. NEULASTA [Suspect]
     Active Substance: PEGFILGRASTIM
     Indication: PROPHYLAXIS
     Dosage: UNK
     Route: 065
  8. NEULASTA [Suspect]
     Active Substance: PEGFILGRASTIM
     Dosage: UNK
     Route: 065
  9. ADRIAMYCIN [Suspect]
     Active Substance: DOXORUBICIN HYDROCHLORIDE
     Indication: LYMPHOPROLIFERATIVE DISORDER
     Dosage: UNK
     Route: 065
  10. PREDNISONE. [Suspect]
     Active Substance: PREDNISONE
     Indication: LYMPHOPROLIFERATIVE DISORDER
     Dosage: UNK
     Route: 065
  11. ETOPOSIDE. [Suspect]
     Active Substance: ETOPOSIDE
     Indication: LYMPHOPROLIFERATIVE DISORDER
     Dosage: UNK
     Route: 065
  12. CISPLATIN. [Suspect]
     Active Substance: CISPLATIN
     Indication: LYMPHOPROLIFERATIVE DISORDER
     Dosage: UNK
     Route: 065
  13. RITUXIMAB. [Suspect]
     Active Substance: RITUXIMAB
     Indication: LYMPHOPROLIFERATIVE DISORDER
     Dosage: UNK
     Route: 065
  14. CYCLOPHOSPHAMIDE. [Suspect]
     Active Substance: CYCLOPHOSPHAMIDE
     Indication: LYMPHOPROLIFERATIVE DISORDER
     Dosage: UNK
     Route: 065
  15. BENDAMUSTINE [Suspect]
     Active Substance: BENDAMUSTINE
     Indication: LYMPHOPROLIFERATIVE DISORDER
     Dosage: UNK
     Route: 065

REACTIONS (6)
  - Febrile neutropenia [Unknown]
  - Toxicity to various agents [Unknown]
  - Enterocolitis [Unknown]
  - Pneumonia [Unknown]
  - Cystitis [Unknown]
  - Neutropenia [Unknown]
